FAERS Safety Report 10027607 (Version 1)
Quarter: 2014Q1

REPORT INFORMATION
  Report Type: Spontaneous
  Country: SE (occurrence: SE)
  Receive Date: 20140321
  Receipt Date: 20140321
  Transmission Date: 20141002
  Serious: Yes (Hospitalization)
  Sender: FDA-Public Use
  Company Number: SE-PFIZER INC-2014078825

PATIENT
  Age: 48 Year
  Sex: Male

DRUGS (1)
  1. XANOR [Suspect]
     Dosage: UNK

REACTIONS (1)
  - Toxicity to various agents [Recovered/Resolved]
